FAERS Safety Report 7903392-1 (Version None)
Quarter: 2011Q4

REPORT INFORMATION
  Report Type: 
  Country: None (occurrence: None)
  Receive Date: 20111107
  Receipt Date: 20110830
  Transmission Date: 20120403
  Serious: Yes (Death)
  Sender: FDA-Public Use
  Company Number: DAV-AE-MTX-11-052

PATIENT
  Age: 85 Year
  Sex: Female

DRUGS (15)
  1. PREDNISOLONE [Concomitant]
  2. MECOBALAMIN (MECOBALMIN) [Concomitant]
  3. FOSAMAX [Concomitant]
  4. BLOPRESS (CANDESARTAN CILEXETIL) [Concomitant]
  5. LFIDINE (SULFASALAZINE) [Concomitant]
  6. AMLODIPINE BESYLATE [Concomitant]
  7. FERROMIA (FERROUS SODIUM CITRATE) [Concomitant]
  8. FOLIC ACID [Concomitant]
  9. MOBIC [Concomitant]
  10. CEROCRAL (IFENPRODIL TARTRATE) [Concomitant]
  11. METHOTREXATE [Suspect]
     Indication: RHEUMATOID ARTHRITIS
     Dosage: 2 MILLIGRAM/WK
     Dates: end: 20110302
  12. MUCODYNE (CARBOCISTEINE) [Concomitant]
  13. LASIX [Concomitant]
  14. EPOGEN [Concomitant]
  15. CEFTRIAXONE [Concomitant]

REACTIONS (8)
  - CONDITION AGGRAVATED [None]
  - MYELODYSPLASTIC SYNDROME [None]
  - ANAEMIA MACROCYTIC [None]
  - RHEUMATOID ARTHRITIS [None]
  - PYREXIA [None]
  - NASOPHARYNGITIS [None]
  - CARDIAC FAILURE [None]
  - CHEST PAIN [None]
